FAERS Safety Report 14947992 (Version 2)
Quarter: 2018Q2

REPORT INFORMATION
  Report Type: Report from Study
  Country: US (occurrence: US)
  Receive Date: 20180529
  Receipt Date: 20180615
  Transmission Date: 20180711
  Serious: Yes (Hospitalization)
  Sender: FDA-Public Use
  Company Number: US-CELGENEUS-USA-20180509032

PATIENT
  Age: 76 Year
  Sex: Female

DRUGS (4)
  1. ABRAXANE [Suspect]
     Active Substance: PACLITAXEL
     Indication: NON-SMALL CELL LUNG CANCER
     Route: 042
     Dates: start: 20180502, end: 20180502
  2. ABRAXANE [Suspect]
     Active Substance: PACLITAXEL
     Dosage: 100.0 MG/M2
     Route: 042
     Dates: start: 20180509, end: 20180509
  3. MEDI4736 (DURVALUMAB) [Concomitant]
     Active Substance: DURVALUMAB
     Indication: NON-SMALL CELL LUNG CANCER
     Route: 042
     Dates: start: 20180502, end: 20180502
  4. CARBOPLATIN. [Concomitant]
     Active Substance: CARBOPLATIN
     Indication: NON-SMALL CELL LUNG CANCER
     Dosage: 6.0 AUC
     Route: 042
     Dates: start: 20180502, end: 20180502

REACTIONS (1)
  - Hip fracture [Recovered/Resolved]

NARRATIVE: CASE EVENT DATE: 20180516
